FAERS Safety Report 11183503 (Version 3)
Quarter: 2016Q1

REPORT INFORMATION
  Report Type: Report from Study
  Country: DE (occurrence: DE)
  Receive Date: 20150612
  Receipt Date: 20160203
  Transmission Date: 20160525
  Serious: Yes (Hospitalization)
  Sender: FDA-Public Use
  Company Number: DE-ROCHE-1591733

PATIENT
  Sex: Female

DRUGS (11)
  1. RITUXIMAB [Suspect]
     Active Substance: RITUXIMAB
     Indication: RHEUMATOID ARTHRITIS
     Dosage: LAST DOSE PRIOR TO EVENT 1000MG ON 04/NOV/2014.
     Route: 042
  2. OXYGESIC [Concomitant]
     Active Substance: OXYCODONE
  3. TOCILIZUMAB [Suspect]
     Active Substance: TOCILIZUMAB
     Dosage: 507-520 MG
     Route: 042
     Dates: start: 201305, end: 201410
  4. PREDNISOLON [Concomitant]
     Active Substance: PREDNISOLONE
  5. CARVEDILOL. [Concomitant]
     Active Substance: CARVEDILOL
     Route: 065
  6. DELIX (GERMANY) [Concomitant]
  7. CYTOBION [Concomitant]
     Indication: VITAMIN B12 DEFICIENCY
  8. TOCILIZUMAB [Suspect]
     Active Substance: TOCILIZUMAB
     Indication: RHEUMATOID ARTHRITIS
     Route: 042
     Dates: start: 201209, end: 201301
  9. TILIDIN [Concomitant]
     Active Substance: NALOXONE HYDROCHLORIDE\TILIDINE HYDROCHLORIDE
  10. VIGANTOLETTEN [Concomitant]
     Active Substance: CHOLECALCIFEROL
  11. LEFLUNOMID [Concomitant]
     Active Substance: LEFLUNOMIDE
     Route: 065

REACTIONS (6)
  - Deep vein thrombosis [Unknown]
  - Influenza like illness [Unknown]
  - Sinusitis [Unknown]
  - Haematoma [Recovered/Resolved]
  - Synovial rupture [Unknown]
  - Haemolytic anaemia [Recovered/Resolved]

NARRATIVE: CASE EVENT DATE: 20141211
